FAERS Safety Report 7683306-2 (Version None)
Quarter: 2011Q3

REPORT INFORMATION
  Report Type: 
  Country: None (occurrence: None)
  Receive Date: 20110815
  Receipt Date: 20110809
  Transmission Date: 20111222
  Serious: Yes (Other)
  Sender: FDA-Public Use
  Company Number: JP-GLAXOSMITHKLINE-B0735810A

PATIENT
  Sex: Female
  Weight: 30 kg

DRUGS (8)
  1. PRAVASTATIN SODIUM [Concomitant]
     Indication: HYPERCHOLESTEROLAEMIA
     Dosage: 5MG PER DAY
     Route: 048
  2. UNKNOWN DRUG [Concomitant]
     Indication: OSTEOPOROSIS
     Dosage: 1MG PER DAY
     Route: 048
  3. SELBEX [Concomitant]
     Dosage: 2IUAX PER DAY
     Route: 048
     Dates: start: 20110720, end: 20110723
  4. VALTREX [Suspect]
     Indication: HERPES ZOSTER
     Dosage: 3000MG PER DAY
     Route: 048
     Dates: start: 20110720, end: 20110725
  5. LOXONIN [Concomitant]
     Indication: ANALGESIC THERAPY
     Route: 048
     Dates: start: 20110720
  6. ALENDRONATE SODIUM [Concomitant]
     Indication: OSTEOPOROSIS
     Route: 048
  7. NIVADIL [Concomitant]
     Indication: HYPERTENSION
     Dosage: 2MG PER DAY
     Route: 048
  8. ADALAT [Concomitant]
     Route: 048

REACTIONS (3)
  - PURPURA [None]
  - HAEMORRHAGE SUBCUTANEOUS [None]
  - PLATELET COUNT DECREASED [None]
